FAERS Safety Report 9577345 (Version 1)
Quarter: 2013Q4

REPORT INFORMATION
  Report Type: Spontaneous
  Country: US (occurrence: US)
  Receive Date: 20131001
  Receipt Date: 20131001
  Transmission Date: 20140711
  Serious: No
  Sender: FDA-Public Use
  Company Number: US-AMGEN-USASP2013008072

PATIENT
  Sex: Male
  Weight: 158.73 kg

DRUGS (17)
  1. ENBREL [Suspect]
     Indication: RHEUMATOID ARTHRITIS
     Dosage: UNK
  2. ANDROGEL [Concomitant]
     Dosage: UNK
  3. CALCIUM MAGNESIUM                  /00591201/ [Concomitant]
     Dosage: UNK
  4. CIMZIA [Concomitant]
     Dosage: UNK
  5. CO Q 10                            /00517201/ [Concomitant]
     Dosage: UNK
  6. FISH OIL [Concomitant]
     Dosage: UNK
  7. FOLIC ACID [Concomitant]
     Dosage: UNK
  8. KLOR CON [Concomitant]
     Dosage: UNK
  9. LASIX                              /00032601/ [Concomitant]
     Dosage: UNK
  10. METHOTREXATE [Concomitant]
     Dosage: UNK
  11. OXYCODONE [Concomitant]
     Dosage: UNK
  12. OXYCONTIN [Concomitant]
     Dosage: UNK
  13. PREDNISONE [Concomitant]
     Dosage: UNK
  14. SOMA [Concomitant]
  15. TOPROL [Concomitant]
     Dosage: UNK
  16. TYLENOL                            /00020001/ [Concomitant]
     Dosage: UNK
  17. VITAMIN B12                        /00056201/ [Concomitant]
     Dosage: UNK

REACTIONS (1)
  - Therapeutic response decreased [Unknown]
